FAERS Safety Report 9330645 (Version 1)
Quarter: 2013Q2

REPORT INFORMATION
  Report Type: Spontaneous
  Country: US (occurrence: None)
  Receive Date: 20130604
  Receipt Date: 20130604
  Transmission Date: 20140414
  Serious: No
  Sender: FDA-Public Use
  Company Number: None

PATIENT
  Sex: Female

DRUGS (1)
  1. FORTEO [Suspect]
     Dosage: SQ
     Dates: start: 20130429, end: 20130524

REACTIONS (3)
  - Pain [None]
  - Palpitations [None]
  - Headache [None]
